FAERS Safety Report 16236231 (Version 1)
Quarter: 2019Q2

REPORT INFORMATION
  Report Type: Spontaneous
  Country: DE (occurrence: DE)
  Receive Date: 20190425
  Receipt Date: 20190425
  Transmission Date: 20190711
  Serious: Yes (Hospitalization)
  Sender: FDA-Public Use
  Company Number: DE-TEVA-2019-DE-1041521

PATIENT
  Age: 62 Year
  Sex: Female

DRUGS (14)
  1. VENLAFAXINE [Suspect]
     Active Substance: VENLAFAXINE HYDROCHLORIDE
     Dosage: 37.5 MILLIGRAM DAILY;
     Dates: start: 20180112, end: 20180114
  2. VENLAFAXINE [Suspect]
     Active Substance: VENLAFAXINE HYDROCHLORIDE
     Dosage: 75 MILLIGRAM DAILY;
     Dates: start: 20180115, end: 20180121
  3. VENLAFAXINE [Suspect]
     Active Substance: VENLAFAXINE HYDROCHLORIDE
     Dosage: 75 MILLIGRAM DAILY;
     Dates: start: 20180126, end: 20180128
  4. REMERGIL [Concomitant]
     Active Substance: MIRTAZAPINE
     Dosage: 15 MILLIGRAM DAILY;
     Dates: start: 20180124, end: 20180128
  5. REMERGIL [Concomitant]
     Active Substance: MIRTAZAPINE
     Dates: start: 20180129
  6. VENLAFAXINE [Suspect]
     Active Substance: VENLAFAXINE HYDROCHLORIDE
     Dosage: 112.5 MILLIGRAM DAILY;
     Dates: start: 20180122
  7. VENLAFAXINE [Suspect]
     Active Substance: VENLAFAXINE HYDROCHLORIDE
     Dosage: 150 MILLIGRAM DAILY;
     Dates: start: 20180123
  8. VENLAFAXINE [Suspect]
     Active Substance: VENLAFAXINE HYDROCHLORIDE
     Dosage: 112.5 MILLIGRAM DAILY;
     Dates: start: 20180124, end: 20180125
  9. VENLAFAXINE [Suspect]
     Active Substance: VENLAFAXINE HYDROCHLORIDE
     Dosage: 37.5 MILLIGRAM DAILY;
     Dates: start: 20180129, end: 20180130
  10. L-THYROXIN [Concomitant]
     Active Substance: LEVOTHYROXINE SODIUM
     Dosage: 88 MICROGRAM DAILY; OUTPATIENT AND INPATIENT CONTINUE
  11. TOFRANIL [Concomitant]
     Active Substance: IMIPRAMINE HYDROCHLORIDE
     Dosage: 50 MILLIGRAM DAILY;
     Dates: start: 20180112, end: 20180114
  12. TOFRANIL [Concomitant]
     Active Substance: IMIPRAMINE HYDROCHLORIDE
     Dosage: 75 MILLIGRAM DAILY; LONG-TERM OUTPATIENT
  13. JODID [Concomitant]
     Active Substance: IODINE
     Dosage: 200 MICROGRAM DAILY; OUTPATIENT AND INPATIENT CONTINUE
  14. TOFRANIL [Concomitant]
     Active Substance: IMIPRAMINE HYDROCHLORIDE
     Dosage: 25 MILLIGRAM DAILY;
     Dates: start: 20180115, end: 20180121

REACTIONS (3)
  - Hepatic enzyme increased [Recovering/Resolving]
  - Dizziness [Unknown]
  - Restlessness [Unknown]

NARRATIVE: CASE EVENT DATE: 20180126
